FAERS Safety Report 6282983-0 (Version None)
Quarter: 2009Q3

REPORT INFORMATION
  Report Type: 
  Country: None (occurrence: None)
  Receive Date: 20090724
  Receipt Date: 20090611
  Transmission Date: 20100115
  Serious: Yes (Other)
  Sender: FDA-Public Use
  Company Number: PHHY2009CA24141

PATIENT
  Sex: Female

DRUGS (1)
  1. VOLTAREN (NVO) [Suspect]
     Dosage: UNK

REACTIONS (2)
  - DRUG ADMINISTRATION ERROR [None]
  - SURGERY [None]
